FAERS Safety Report 7294519-6 (Version None)
Quarter: 2011Q1

REPORT INFORMATION
  Report Type: 
  Country: None (occurrence: None)
  Receive Date: 20110216
  Receipt Date: 20110202
  Transmission Date: 20110831
  Serious: No
  Sender: FDA-Public Use
  Company Number: US-BIOGENIDEC-2011BI000426

PATIENT
  Age: 59 Year
  Sex: Female

DRUGS (2)
  1. TYSABRI [Suspect]
     Indication: MULTIPLE SCLEROSIS
     Route: 042
  2. TYSABRI [Suspect]
     Route: 042
     Dates: start: 20090717

REACTIONS (7)
  - STRESS [None]
  - GAIT DISTURBANCE [None]
  - HYPOAESTHESIA [None]
  - DYSGRAPHIA [None]
  - ANKLE FRACTURE [None]
  - BEDRIDDEN [None]
  - FALL [None]
